FAERS Safety Report 21009686 (Version 1)
Quarter: 2022Q2

REPORT INFORMATION
  Report Type: Spontaneous
  Country: FR (occurrence: FR)
  Receive Date: 20220627
  Receipt Date: 20220627
  Transmission Date: 20220721
  Serious: Yes (Life-Threatening, Other)
  Sender: FDA-Public Use
  Company Number: FR-MYLANLABS-2022M1038069

PATIENT
  Age: 39 Year
  Sex: Male
  Weight: 69 kg

DRUGS (1)
  1. CLOMIPRAMINE [Suspect]
     Active Substance: CLOMIPRAMINE
     Indication: Product used for unknown indication
     Dosage: 25 MILLIGRAM, BID, INTAKE OF 2 TABLETS OF 25 MG - PRESCRIBED POSOLOGY: 50 MG DAILY
     Route: 048

REACTIONS (5)
  - Hot flush [Recovered/Resolved]
  - Face oedema [Recovered/Resolved]
  - Feeling hot [Unknown]
  - Erythema [Unknown]
  - Hypersensitivity [Unknown]
